FAERS Safety Report 7115410-1 (Version None)
Quarter: 2010Q4

REPORT INFORMATION
  Report Type: 
  Country: None (occurrence: None)
  Receive Date: 20101117
  Receipt Date: 20101117
  Transmission Date: 20110411
  Serious: No
  Sender: FDA-Public Use
  Company Number: None

PATIENT
  Age: 39 Year
  Sex: Female
  Weight: 54.06 kg

DRUGS (2)
  1. METOCLOPRAMIDE [Suspect]
     Indication: INTESTINAL FUNCTIONAL DISORDER
     Dosage: PRN USAGE ONLY
     Dates: start: 20100826, end: 20100827
  2. METOCLOPRAMIDE [Suspect]
     Indication: NAUSEA
     Dosage: PRN USAGE ONLY
     Dates: start: 20100826, end: 20100827

REACTIONS (1)
  - DYSTONIA [None]
